FAERS Safety Report 5641137-9 (Version None)
Quarter: 2008Q1

REPORT INFORMATION
  Report Type: 
  Country: None (occurrence: None)
  Receive Date: 20080227
  Receipt Date: 20070202
  Transmission Date: 20080703
  Serious: No
  Sender: FDA-Public Use
  Company Number: A0637902A

PATIENT
  Age: 61 Year
  Sex: Female

DRUGS (1)
  1. NICORETTE [Suspect]

REACTIONS (4)
  - EUPHORIC MOOD [None]
  - FEELING OF RELAXATION [None]
  - INTENTIONAL DRUG MISUSE [None]
  - NICOTINE DEPENDENCE [None]
